FAERS Safety Report 24624846 (Version 3)
Quarter: 2025Q1

REPORT INFORMATION
  Report Type: Spontaneous
  Country: AU (occurrence: AU)
  Receive Date: 20241115
  Receipt Date: 20250106
  Transmission Date: 20250408
  Serious: Yes (Hospitalization, Other)
  Sender: BAYER HEALTHCARE PHARMACEUTICALS INC.
  Company Number: AU-BAYER-2024A160031

PATIENT
  Age: 48 Year
  Sex: Female
  Weight: 65 kg

DRUGS (1)
  1. GADOBUTROL [Suspect]
     Active Substance: GADOBUTROL
     Indication: Magnetic resonance imaging
     Route: 042
     Dates: start: 20240807, end: 20240807

REACTIONS (5)
  - Disorientation [None]
  - Urticaria [Recovered/Resolved]
  - Cough [None]
  - Dyspnoea [Recovered/Resolved]
  - Contrast media reaction [None]

NARRATIVE: CASE EVENT DATE: 20240807
